FAERS Safety Report 7832899-0 (Version None)
Quarter: 2011Q4

REPORT INFORMATION
  Report Type: 
  Country: None (occurrence: None)
  Receive Date: 20111019
  Receipt Date: 20111010
  Transmission Date: 20120403
  Serious: Yes (Other)
  Sender: FDA-Public Use
  Company Number: AUR-APL-2011-04290

PATIENT
  Age: 61 Year
  Sex: Female

DRUGS (14)
  1. BENDROFLUMETHIAZIDE (BENDROFLUMETHIAZIDE) [Concomitant]
  2. SIMVASTATIN [Concomitant]
  3. BISOPROLOL FUMARATE [Suspect]
     Indication: PRODUCT USED FOR UNKNOWN INDICATION
     Dates: start: 20101001, end: 20101006
  4. TILDIEM LA (DILTIAZEM HYDROCHLORIDE) [Suspect]
     Indication: PRODUCT USED FOR UNKNOWN INDICATION
     Dosage: ORAL
     Route: 048
     Dates: start: 20101006, end: 20101104
  5. DILTIAZEM [Suspect]
     Indication: PRODUCT USED FOR UNKNOWN INDICATION
     Dosage: ORAL
     Route: 048
     Dates: end: 20101104
  6. ASPIRIN [Concomitant]
  7. DANDELION (TARAXACUM OFFICINALE) [Concomitant]
  8. SOTALOL HCL [Concomitant]
  9. HERBAL MEDICATION (HERBAL PREPARATION) [Concomitant]
  10. INDAPAMIDE [Concomitant]
  11. LOSARTAN POTASSIUM [Concomitant]
  12. RAMIPRIL [Suspect]
     Indication: BLOOD PRESSURE
     Dosage: (2.5 MG) ; (0.75 MG)
     Dates: start: 20101206, end: 20101216
  13. RAMIPRIL [Suspect]
     Indication: BLOOD PRESSURE
     Dosage: (2.5 MG) ; (0.75 MG)
     Dates: start: 20101118
  14. MEBEVERINE (MEBEVERINE) [Concomitant]

REACTIONS (10)
  - VERTIGO [None]
  - DRUG HYPERSENSITIVITY [None]
  - NAUSEA [None]
  - HYPOAESTHESIA [None]
  - DRUG INTOLERANCE [None]
  - BLOOD PRESSURE INCREASED [None]
  - DIZZINESS POSTURAL [None]
  - VISION BLURRED [None]
  - VISUAL IMPAIRMENT [None]
  - MIGRAINE WITH AURA [None]
